FAERS Safety Report 5579098-3 (Version None)
Quarter: 2008Q1

REPORT INFORMATION
  Report Type: 
  Country: None (occurrence: None)
  Receive Date: 20080102
  Receipt Date: 20071227
  Transmission Date: 20080703
  Serious: Yes (Other)
  Sender: FDA-Public Use
  Company Number: US-ASTRAZENECA-2007UW29018

PATIENT
  Age: 48 Year
  Sex: Female
  Weight: 64.9 kg

DRUGS (10)
  1. SEROQUEL [Suspect]
     Indication: BIPOLAR DISORDER
     Route: 048
     Dates: start: 20051201, end: 20070701
  2. SEROQUEL [Suspect]
     Route: 048
     Dates: start: 20070701, end: 20070701
  3. SEROQUEL [Suspect]
     Route: 048
     Dates: start: 20070701, end: 20070101
  4. SEROQUEL [Suspect]
     Route: 048
     Dates: start: 20070101
  5. SYNTHROID [Concomitant]
  6. NORPRAMIN [Concomitant]
  7. LASIX [Concomitant]
  8. POTASSIUM CHLORIDE [Concomitant]
  9. PERCOCET [Concomitant]
  10. KLONOPIN [Concomitant]
     Indication: PANIC DISORDER

REACTIONS (8)
  - BLOOD GLUCOSE FLUCTUATION [None]
  - IMPULSE-CONTROL DISORDER [None]
  - INCOHERENT [None]
  - MEMORY IMPAIRMENT [None]
  - MOOD ALTERED [None]
  - PSYCHOMOTOR SKILLS IMPAIRED [None]
  - ROAD TRAFFIC ACCIDENT [None]
  - SOMNAMBULISM [None]
